FAERS Safety Report 9031467 (Version 3)
Quarter: 2013Q2

REPORT INFORMATION
  Report Type: Report from Study
  Country: CR (occurrence: CR)
  Receive Date: 20130124
  Receipt Date: 20130404
  Transmission Date: 20140414
  Serious: Yes (Hospitalization, Other)
  Sender: FDA-Public Use
  Company Number: CR-ROCHE-1182456

PATIENT
  Age: 71 Year
  Sex: Female
  Weight: 51 kg

DRUGS (8)
  1. BONVIVA [Suspect]
     Indication: OSTEOPOROSIS
     Route: 048
     Dates: start: 20061211, end: 20121022
  2. EPIVAL [Concomitant]
     Indication: EPILEPSY
  3. PRIMIDONE [Concomitant]
     Indication: EPILEPSY
  4. STRONTIUM RANELATE [Concomitant]
  5. EUTIROX [Concomitant]
     Indication: HYPOTHYROIDISM
     Route: 048
     Dates: start: 20091215
  6. PREMARIN [Concomitant]
     Route: 067
     Dates: start: 19971109
  7. LOVASTATIN [Concomitant]
     Indication: HYPERLIPIDAEMIA
     Route: 048
     Dates: start: 20091215
  8. ALENDRONATE [Concomitant]
     Indication: OSTEOPOROSIS
     Route: 065
     Dates: start: 1998

REACTIONS (4)
  - Tibia fracture [Recovered/Resolved]
  - Wrist fracture [Recovered/Resolved]
  - Hip fracture [Recovered/Resolved]
  - Drug ineffective [Unknown]
